FAERS Safety Report 21379201 (Version 3)
Quarter: 2022Q4

REPORT INFORMATION
  Report Type: Report from Study
  Country: JP (occurrence: JP)
  Receive Date: 20220927
  Receipt Date: 20221222
  Transmission Date: 20230112
  Serious: Yes (Hospitalization, Other)
  Sender: FDA-Public Use
  Company Number: JP-ABBVIE-19S-087-2697288-00

PATIENT
  Age: 73 Year
  Sex: Female
  Weight: 49 kg

DRUGS (3)
  1. CARBIDOPA\LEVODOPA [Suspect]
     Active Substance: CARBIDOPA\LEVODOPA
     Indication: Parkinson^s disease
     Dosage: MD: 9 ML?CD: 2.9 ML/HR FOR 16 HRS
     Route: 050
     Dates: start: 20181102, end: 20181114
  2. CARBIDOPA\LEVODOPA [Suspect]
     Active Substance: CARBIDOPA\LEVODOPA
     Route: 050
     Dates: start: 20190416
  3. ISTRADEFYLLINE [Concomitant]
     Active Substance: ISTRADEFYLLINE
     Indication: Parkinson^s disease
     Route: 048

REACTIONS (51)
  - Gastric perforation [Unknown]
  - Hospitalisation [Unknown]
  - Gastric disorder [Unknown]
  - Abdominal discomfort [Not Recovered/Not Resolved]
  - Posture abnormal [Unknown]
  - Taste disorder [Unknown]
  - Asthenia [Unknown]
  - Dysphonia [Unknown]
  - Nasopharyngitis [Unknown]
  - Gastrointestinal hypermotility [Unknown]
  - Malaise [Unknown]
  - Nausea [Not Recovered/Not Resolved]
  - Gait inability [Recovering/Resolving]
  - Abdominal pain upper [Unknown]
  - Posture abnormal [Recovered/Resolved]
  - Adverse food reaction [Unknown]
  - Decreased appetite [Unknown]
  - Asthenia [Recovered/Resolved]
  - Asthenia [Recovered/Resolved]
  - Asthenia [Recovered/Resolved]
  - Asthenia [Recovered/Resolved]
  - Weight decreased [Unknown]
  - Fall [Unknown]
  - Chromaturia [Unknown]
  - Pyrexia [Unknown]
  - On and off phenomenon [Unknown]
  - Drug ineffective [Recovering/Resolving]
  - Stoma site discomfort [Unknown]
  - Constipation [Unknown]
  - Stoma complication [Unknown]
  - Stoma site hypergranulation [Recovering/Resolving]
  - Stoma site discharge [Unknown]
  - Stoma site odour [Unknown]
  - Stoma site reaction [Unknown]
  - Dyskinesia [Unknown]
  - Therapeutic response shortened [Unknown]
  - Device issue [Unknown]
  - Device occlusion [Unknown]
  - Stoma site irritation [Unknown]
  - Nausea [Unknown]
  - Stoma site erythema [Recovered/Resolved]
  - Stoma site oedema [Unknown]
  - Stoma site erythema [Unknown]
  - Stoma site pain [Unknown]
  - Device alarm issue [Unknown]
  - Asthenia [Recovered/Resolved]
  - Medical device pain [Unknown]
  - Mobility decreased [Unknown]
  - Asthenia [Unknown]
  - Therapeutic product effect decreased [Unknown]
  - Device connection issue [Unknown]

NARRATIVE: CASE EVENT DATE: 20190401
